FAERS Safety Report 25542497 (Version 1)
Quarter: 2025Q3

REPORT INFORMATION
  Report Type: Spontaneous
  Country: US (occurrence: US)
  Receive Date: 20250711
  Receipt Date: 20250711
  Transmission Date: 20251021
  Serious: Yes (Hospitalization, Other)
  Sender: NOVITIUM PHARMA
  Company Number: US-NOVITIUMPHARMA-2025USNVP01567

PATIENT
  Age: 73 Year
  Sex: Male

DRUGS (6)
  1. PREDNISONE [Suspect]
     Active Substance: PREDNISONE
     Indication: Immunosuppressant drug therapy
  2. SIROLIMUS [Concomitant]
     Active Substance: SIROLIMUS
  3. TACROLIMUS [Concomitant]
     Active Substance: TACROLIMUS
     Dosage: GOAL TROUGH 5-7 NG/ML
  4. CEFEPIME [Concomitant]
     Active Substance: CEFEPIME HYDROCHLORIDE
  5. AMOXICILLIN\CLAVULANIC ACID [Concomitant]
     Active Substance: AMOXICILLIN\CLAVULANIC ACID
  6. AMPHOTERICIN B [Concomitant]
     Active Substance: AMPHOTERICIN B
     Indication: Product used for unknown indication

REACTIONS (2)
  - Pneumonia [Recovered/Resolved]
  - Epstein-Barr virus infection [Recovering/Resolving]
